FAERS Safety Report 5530900-0 (Version None)
Quarter: 2007Q4

REPORT INFORMATION
  Report Type: 
  Country: None (occurrence: None)
  Receive Date: 20071130
  Receipt Date: 20071128
  Transmission Date: 20080405
  Serious: Yes (Hospitalization, Other)
  Sender: FDA-Public Use
  Company Number: US-ASTRAZENECA-2007UW21781

PATIENT
  Age: 77 Year
  Sex: Male
  Weight: 78 kg

DRUGS (6)
  1. CASODEX [Suspect]
     Indication: PROSTATE CANCER
     Route: 048
     Dates: start: 20030417
  2. HYDROCHLOROTHIAZIDE [Concomitant]
     Indication: HYPOTENSION
     Route: 048
     Dates: start: 20020715
  3. UROXATROL [Concomitant]
     Indication: URINARY TRACT DISORDER
     Route: 048
     Dates: start: 20060721
  4. CALCIUM + VITAMIN D [Concomitant]
  5. TOLTERODINE TARTRATE [Concomitant]
     Indication: URINARY TRACT DISORDER
     Route: 048
     Dates: start: 20070629
  6. ZOLADEX [Concomitant]
     Indication: PROSTATE CANCER
     Dates: start: 20020101, end: 20020101

REACTIONS (4)
  - ANAEMIA [None]
  - ANGINA PECTORIS [None]
  - DYSPNOEA [None]
  - MASS [None]
